FAERS Safety Report 11306215 (Version 1)
Quarter: 2015Q3

REPORT INFORMATION
  Report Type: Spontaneous
  Country: US (occurrence: US)
  Receive Date: 20150723
  Receipt Date: 20150723
  Transmission Date: 20151125
  Serious: No
  Sender: FDA-Public Use
  Company Number: US-PFIZER INC-2015236935

PATIENT
  Age: 61 Year
  Sex: Female
  Weight: 135 kg

DRUGS (2)
  1. SPIRONOLACTONE. [Suspect]
     Active Substance: SPIRONOLACTONE
     Indication: DIURETIC THERAPY
     Dosage: 25 MG, 1X/DAY
  2. METOLAZONE. [Suspect]
     Active Substance: METOLAZONE
     Indication: DIURETIC THERAPY
     Dosage: 5 MG, UNK (TAKES ON MONDAYS, WEDNESDAYS AND FRIDAYS)

REACTIONS (2)
  - Blood potassium decreased [Unknown]
  - Muscle spasms [Unknown]
